FAERS Safety Report 11842375 (Version 1)
Quarter: 2015Q4

REPORT INFORMATION
  Report Type: Spontaneous
  Country: US (occurrence: None)
  Receive Date: 20151216
  Receipt Date: 20151216
  Transmission Date: 20160305
  Serious: Yes (Other)
  Sender: FDA-Public Use
  Company Number: None

PATIENT
  Age: 68 Year
  Sex: Female
  Weight: 73.94 kg

DRUGS (16)
  1. OSTEOBIFLEX [Concomitant]
  2. D-3 [Concomitant]
     Active Substance: CHOLECALCIFEROL
  3. OMEPRAZOLE. [Concomitant]
     Active Substance: OMEPRAZOLE
  4. PROLIA [Suspect]
     Active Substance: DENOSUMAB
     Indication: OSTEOPENIA
     Dosage: ONE INJECTION  2X/YR. (ONLY DID THE ONE)  INJECTION IN STOMACH?NEVER TOOK 2ND INJECTION DUE DEC 2015
     Dates: start: 20150713
  5. FLAXSEED [Concomitant]
     Active Substance: FLAX SEED
  6. OXYCODONE [Concomitant]
     Active Substance: OXYCODONE
  7. ETODOLAC. [Concomitant]
     Active Substance: ETODOLAC
  8. BIOTIN [Concomitant]
     Active Substance: BIOTIN
  9. SLEEP AID NIGHTTIME [Concomitant]
     Active Substance: DIPHENHYDRAMINE HYDROCHLORIDE
  10. CLARINEX [Concomitant]
     Active Substance: DESLORATADINE
  11. VITAMIN B COMPLEX [Concomitant]
     Active Substance: CYANOCOBALAMIN\DEXPANTHENOL\NIACINAMIDE\PYRIDOXINE HYDROCHLORIDE\RIBOFLAVIN 5^-PHOSPHATE SODIUM\THIAMINE HYDROCHLORIDE\VITAMIN B COMPLEX
  12. CALCIUM [Concomitant]
     Active Substance: CALCIUM
  13. AMBIEN [Concomitant]
     Active Substance: ZOLPIDEM TARTRATE
  14. MATURE MULTI VIT [Concomitant]
  15. ESTER C [Concomitant]
  16. MEGA RED [Concomitant]

REACTIONS (1)
  - Femur fracture [None]

NARRATIVE: CASE EVENT DATE: 20150713
